FAERS Safety Report 6111434-1 (Version None)
Quarter: 2009Q1

REPORT INFORMATION
  Report Type: 
  Country: None (occurrence: None)
  Receive Date: 20090311
  Receipt Date: 20090303
  Transmission Date: 20090719
  Serious: Yes (Death)
  Sender: FDA-Public Use
  Company Number: DE-CELGENEUS-062-21880-09010578

PATIENT
  Sex: Male
  Weight: 77.4 kg

DRUGS (3)
  1. REVLIMID [Suspect]
     Indication: DRUG USE FOR UNKNOWN INDICATION
     Route: 048
     Dates: start: 20080801, end: 20080901
  2. REVLIMID [Suspect]
     Route: 048
     Dates: start: 20080904
  3. REVLIMID [Suspect]
     Route: 048
     Dates: start: 20081202

REACTIONS (1)
  - MULTIPLE MYELOMA [None]
